FAERS Safety Report 7074572-5 (Version None)
Quarter: 2010Q4

REPORT INFORMATION
  Report Type: 
  Country: None (occurrence: None)
  Receive Date: 20101029
  Receipt Date: 20090930
  Transmission Date: 20110411
  Serious: No
  Sender: FDA-Public Use
  Company Number: A0809756A

PATIENT
  Sex: Male

DRUGS (7)
  1. IMITREX [Suspect]
     Indication: MIGRAINE
     Route: 045
     Dates: start: 20090630
  2. INSULIN [Concomitant]
  3. WATER PILL [Concomitant]
  4. ANTI-CHOLESTEROL MEDICATION [Concomitant]
  5. ATENOLOL [Concomitant]
  6. ANTI-DEPRESSANT (UNKNOWN) [Concomitant]
  7. ASPIRIN [Concomitant]

REACTIONS (1)
  - THERAPEUTIC RESPONSE DELAYED [None]
